FAERS Safety Report 9318164 (Version 1)
Quarter: 2013Q2

REPORT INFORMATION
  Report Type: Spontaneous
  Country: US (occurrence: US)
  Receive Date: 20130530
  Receipt Date: 20130530
  Transmission Date: 20140414
  Serious: No
  Sender: FDA-Public Use
  Company Number: US-NOVEN-12US005515

PATIENT
  Sex: 0

DRUGS (4)
  1. DAYTRANA [Suspect]
     Indication: ATTENTION DEFICIT/HYPERACTIVITY DISORDER
     Dosage: 2 X 20 MG
     Route: 062
     Dates: start: 2011
  2. DAYTRANA [Suspect]
     Dosage: 2 X 20MG
     Route: 062
     Dates: start: 2011
  3. DAYTRANA [Suspect]
     Dosage: UNK
     Route: 062
  4. SERTRALINE [Concomitant]
     Route: 048

REACTIONS (4)
  - Hunger [Not Recovered/Not Resolved]
  - Drug ineffective [Not Recovered/Not Resolved]
  - Wrong technique in drug usage process [Not Recovered/Not Resolved]
  - Drug prescribing error [Not Recovered/Not Resolved]
